FAERS Safety Report 16318585 (Version 1)
Quarter: 2019Q2

REPORT INFORMATION
  Report Type: Spontaneous
  Country: US (occurrence: US)
  Receive Date: 20190516
  Receipt Date: 20190516
  Transmission Date: 20190711
  Serious: Yes (Other)
  Sender: FDA-Public Use
  Company Number: US-ACCORD-127814

PATIENT
  Age: 18 Year
  Sex: Female

DRUGS (5)
  1. ALLOPURINOL. [Concomitant]
     Active Substance: ALLOPURINOL
     Indication: OVARIAN DYSGERMINOMA STAGE UNSPECIFIED
  2. RASBURICASE [Concomitant]
     Active Substance: RASBURICASE
     Indication: BLOOD URIC ACID INCREASED
  3. ETOPOSIDE. [Concomitant]
     Active Substance: ETOPOSIDE
     Indication: OVARIAN DYSGERMINOMA STAGE UNSPECIFIED
  4. CISPLATIN. [Suspect]
     Active Substance: CISPLATIN
     Indication: OVARIAN DYSGERMINOMA STAGE UNSPECIFIED
  5. BLEOMYCIN [Concomitant]
     Active Substance: BLEOMYCIN SULFATE
     Indication: OVARIAN DYSGERMINOMA STAGE UNSPECIFIED

REACTIONS (3)
  - Blood creatinine increased [Recovered/Resolved]
  - Condition aggravated [Recovered/Resolved]
  - Somnolence [Unknown]
